FAERS Safety Report 14460261 (Version 1)
Quarter: 2018Q1

REPORT INFORMATION
  Report Type: Other
  Country: US (occurrence: US)
  Receive Date: 20180130
  Receipt Date: 20180130
  Transmission Date: 20180509
  Serious: No
  Sender: FDA-Public Use
  Company Number: US-ACORDA-ACO_141500_2017

PATIENT
  Sex: Male

DRUGS (3)
  1. GABAPENTIN. [Concomitant]
     Active Substance: GABAPENTIN
     Indication: PAIN
     Dosage: 600 MG, TID
     Route: 048
     Dates: start: 20110204
  2. AMPYRA [Suspect]
     Active Substance: DALFAMPRIDINE
     Indication: MULTIPLE SCLEROSIS
     Dosage: 10 MG, BID
     Route: 048
     Dates: start: 20160520
  3. OXYBUTIN [Concomitant]
     Active Substance: OXYBUTYNIN
     Indication: PAIN
     Dosage: 5 MG, QD
     Route: 048
     Dates: start: 20150924

REACTIONS (2)
  - Memory impairment [Unknown]
  - Drug dose omission [Unknown]
